FAERS Safety Report 7540451-X (Version None)
Quarter: 2011Q2

REPORT INFORMATION
  Report Type: 
  Country: None (occurrence: None)
  Receive Date: 20110610
  Receipt Date: 20110601
  Transmission Date: 20111010
  Serious: Yes (Disabling)
  Sender: FDA-Public Use
  Company Number: GB-ASTRAZENECA-2011SE33683

PATIENT
  Age: 74 Year
  Sex: Female
  Weight: 68.2 kg

DRUGS (16)
  1. ESOMEPRAZOLE MAGNESIUM [Suspect]
     Route: 048
     Dates: start: 20110414
  2. OMEPRAZOLE [Concomitant]
     Dates: start: 20110221, end: 20110321
  3. OMEPRAZOLE [Concomitant]
     Dates: start: 20110308, end: 20110405
  4. SALMETEROL [Concomitant]
     Dates: start: 20110509
  5. HYPROMELLOSE [Concomitant]
     Dates: start: 20110221, end: 20110321
  6. SALMETEROL [Concomitant]
     Dates: start: 20110308, end: 20110405
  7. AVEENO [Concomitant]
     Dates: start: 20110308, end: 20110309
  8. HYDROXYZINE [Concomitant]
     Dates: start: 20110509
  9. HYPROMELLOSE [Concomitant]
     Dates: start: 20110509
  10. SALMETEROL [Concomitant]
     Dates: start: 20110131, end: 20110228
  11. SALMETEROL [Concomitant]
     Dates: start: 20110406, end: 20110504
  12. ESOMEPRAZOLE MAGNESIUM [Suspect]
     Route: 048
  13. OMEPRAZOLE [Concomitant]
     Dates: start: 20110131, end: 20110228
  14. AVEENO [Concomitant]
     Dates: start: 20110406, end: 20110407
  15. AVEENO [Concomitant]
     Dates: start: 20110509
  16. OMEPRAZOLE [Concomitant]
     Dates: start: 20110406, end: 20110504

REACTIONS (5)
  - ANXIETY [None]
  - DIZZINESS [None]
  - VISION BLURRED [None]
  - SEDATION [None]
  - HEADACHE [None]
